FAERS Safety Report 6074120-2 (Version None)
Quarter: 2009Q1

REPORT INFORMATION
  Report Type: 
  Country: None (occurrence: None)
  Receive Date: 20090211
  Receipt Date: 20090205
  Transmission Date: 20090719
  Serious: Yes (Other)
  Sender: FDA-Public Use
  Company Number: B0557658A

PATIENT
  Age: 5 Year
  Sex: Male

DRUGS (5)
  1. RELENZA [Suspect]
     Indication: INFLUENZA
     Dosage: 10MG TWICE PER DAY
     Route: 055
     Dates: start: 20090124, end: 20090128
  2. MUCODYNE [Concomitant]
     Route: 048
  3. ASVERIN [Concomitant]
     Route: 048
  4. MEPTIN [Concomitant]
     Route: 065
  5. ZITHROMAX [Concomitant]
     Route: 048
     Dates: start: 20090123, end: 20090123

REACTIONS (2)
  - HALLUCINATION [None]
  - HALLUCINATION, VISUAL [None]
